FAERS Safety Report 17625482 (Version 3)
Quarter: 2020Q2

REPORT INFORMATION
  Report Type: Spontaneous
  Country: FR (occurrence: FR)
  Receive Date: 20200403
  Receipt Date: 20200608
  Transmission Date: 20200713
  Serious: Yes (Other)
  Sender: FDA-Public Use
  Company Number: FR-ACCORD-178072

PATIENT
  Age: 41 Year
  Sex: Female
  Weight: 59 kg

DRUGS (14)
  1. ZOPHREN [Suspect]
     Active Substance: ONDANSETRON
     Indication: PROPHYLAXIS
     Dosage: STRENGTH: 8 MG, LYOPHILISAT ORAL
     Route: 048
     Dates: start: 20200227, end: 20200229
  2. OLANZAPINE. [Concomitant]
     Active Substance: OLANZAPINE
     Indication: MANIA
     Route: 048
     Dates: start: 20200117, end: 20200224
  3. ZOPHREN [Suspect]
     Active Substance: ONDANSETRON
     Indication: PROPHYLAXIS
     Dosage: STRENGTH: 16 MILLIGRAM, QD
     Route: 048
     Dates: start: 20200227, end: 20200229
  4. ETOPOSIDE. [Suspect]
     Active Substance: ETOPOSIDE
     Indication: LYMPHOMA
     Route: 042
     Dates: start: 20200228, end: 20200228
  5. METHOTREXATE. [Suspect]
     Active Substance: METHOTREXATE
     Indication: PRODUCT USED FOR UNKNOWN INDICATION
     Dosage: 4750 MILLIGRAM, QD
     Route: 042
     Dates: start: 20200228, end: 20200228
  6. PARACETAMOL [Suspect]
     Active Substance: ACETAMINOPHEN
     Indication: PAIN
     Route: 048
     Dates: start: 20200227, end: 20200227
  7. PREDNISOLONE. [Suspect]
     Active Substance: PREDNISOLONE
     Indication: LYMPHOMA
     Route: 042
     Dates: start: 20200227, end: 20200302
  8. POLARAMINE [Suspect]
     Active Substance: DEXCHLORPHENIRAMINE MALEATE
     Indication: PROPHYLAXIS
     Dosage: STRENGTH: 2 MG, SCORED TABLET
     Route: 048
     Dates: start: 20200227, end: 20200227
  9. RITUXIMAB. [Suspect]
     Active Substance: RITUXIMAB
     Indication: LYMPHOMA
     Dosage: (MAMMAL / HAMSTER / CHO CELLS)
     Route: 042
     Dates: start: 20200227, end: 20200227
  10. CARMUSTINE. [Suspect]
     Active Substance: CARMUSTINE
     Indication: LYMPHOMA
     Route: 042
     Dates: start: 20200229, end: 20200229
  11. POLARAMINE [Suspect]
     Active Substance: DEXCHLORPHENIRAMINE MALEATE
     Indication: PROPHYLAXIS
     Dosage: STRENGTH: 2 MG, SCORED TABLET
     Route: 048
     Dates: start: 20200227, end: 20200227
  12. CALCIUM FOLINATE WINTHROP [Suspect]
     Active Substance: LEUCOVORIN CALCIUM
     Indication: LYMPHOMA
     Dosage: 25 MILLIGRAM, QD
     Route: 042
     Dates: start: 20200228, end: 20200302
  13. METHYLPREDNISOLONE. [Suspect]
     Active Substance: METHYLPREDNISOLONE
     Indication: CHEMOTHERAPY
     Route: 042
     Dates: start: 20200227, end: 20200227
  14. LANSOPRAZOLE. [Suspect]
     Active Substance: LANSOPRAZOLE
     Indication: PRODUCT USED FOR UNKNOWN INDICATION
     Route: 048
     Dates: start: 20200221, end: 20200309

REACTIONS (2)
  - Off label use [Unknown]
  - Hepatocellular injury [Recovered/Resolved]

NARRATIVE: CASE EVENT DATE: 20200301
